FAERS Safety Report 16470387 (Version 3)
Quarter: 2019Q3

REPORT INFORMATION
  Report Type: Spontaneous
  Country: RU (occurrence: RU)
  Receive Date: 20190624
  Receipt Date: 20190801
  Transmission Date: 20191004
  Serious: Yes (Life-Threatening, Other)
  Sender: FDA-Public Use
  Company Number: RU-009507513-1906RUS008703

PATIENT
  Age: 68 Year
  Sex: Male
  Weight: 75 kg

DRUGS (5)
  1. VEROSPIRON [Concomitant]
     Active Substance: SPIRONOLACTONE
     Dosage: UNK
  2. ASPIRIN. [Concomitant]
     Active Substance: ASPIRIN
  3. CUBICIN [Suspect]
     Active Substance: DAPTOMYCIN
     Indication: ENDOCARDITIS
     Dosage: 500 MG, DAILY
     Route: 042
     Dates: start: 20190613, end: 20190619
  4. MEROPENEM. [Suspect]
     Active Substance: MEROPENEM
     Indication: ENDOCARDITIS
     Dosage: UNK
     Dates: start: 20190614, end: 20190625
  5. CUBICIN [Suspect]
     Active Substance: DAPTOMYCIN
     Indication: AORTIC VALVE DISEASE

REACTIONS (4)
  - Leukopenia [Not Recovered/Not Resolved]
  - Aortic valve replacement [Unknown]
  - Cardiopulmonary bypass [Unknown]
  - Thrombocytopenia [Recovered/Resolved]

NARRATIVE: CASE EVENT DATE: 20190614
